FAERS Safety Report 6343344-9 (Version None)
Quarter: 2009Q3

REPORT INFORMATION
  Report Type: 
  Country: None (occurrence: None)
  Receive Date: 20090908
  Receipt Date: 20090831
  Transmission Date: 20100115
  Serious: No
  Sender: FDA-Public Use
  Company Number: US-B.I. PHARMACEUTICALS,INC./RIDGEFIELD-2009-BP-10189BP

PATIENT
  Age: 13 Year
  Sex: Female

DRUGS (1)
  1. CATAPRES-TTS-1 [Suspect]
     Indication: NEGATIVISM
     Dosage: 0.1 MG
     Route: 061
     Dates: start: 20090829

REACTIONS (1)
  - NIGHTMARE [None]
